FAERS Safety Report 7975870-0 (Version None)
Quarter: 2011Q4

REPORT INFORMATION
  Report Type: 
  Country: None (occurrence: None)
  Receive Date: 20111213
  Receipt Date: 20110930
  Transmission Date: 20120403
  Serious: No
  Sender: FDA-Public Use
  Company Number: US-AMGEN-USASP2011050676

PATIENT
  Age: 62 Year
  Sex: Female

DRUGS (2)
  1. METHOTREXATE [Concomitant]
  2. ENBREL [Suspect]
     Indication: PSORIATIC ARTHROPATHY
     Dosage: 50 MG, QWK
     Dates: start: 20110601

REACTIONS (6)
  - INJECTION SITE PAIN [None]
  - DISORIENTATION [None]
  - TENDON PAIN [None]
  - MENTAL IMPAIRMENT [None]
  - ABDOMINAL PAIN [None]
  - PUSTULAR PSORIASIS [None]
